FAERS Safety Report 19077543 (Version 2)
Quarter: 2025Q2

REPORT INFORMATION
  Report Type: Spontaneous
  Country: US (occurrence: US)
  Receive Date: 20210331
  Receipt Date: 20250626
  Transmission Date: 20250717
  Serious: Yes (Life-Threatening, Hospitalization, Disabling, Other)
  Sender: AUROBINDO
  Company Number: US-MYLANLABS-2021M1018780

PATIENT
  Age: 7 Decade
  Sex: Female

DRUGS (16)
  1. DANTROLENE SODIUM [Suspect]
     Active Substance: DANTROLENE SODIUM
     Indication: Neuroleptic malignant syndrome
     Dosage: 2 MILLIGRAM/KILOGRAM, FOUR TIMES/DAY 2 MILLIGRAM/KILOGRAM, Q6H, LATER DOSE INCREASED)
     Route: 065
  2. DANTROLENE SODIUM [Suspect]
     Active Substance: DANTROLENE SODIUM
     Route: 065
  3. MIRTAZAPINE [Suspect]
     Active Substance: MIRTAZAPINE
     Indication: Psychotic disorder
     Route: 065
  4. LORAZEPAM [Suspect]
     Active Substance: LORAZEPAM
     Indication: Neuroleptic malignant syndrome
     Route: 065
  5. DEXMEDETOMIDINE [Suspect]
     Active Substance: DEXMEDETOMIDINE
     Indication: Neuroleptic malignant syndrome
     Dosage: 0.4 MICROGRAM/KILOGRAM, QH, 0.4-1.4MICROGRAM/KG DRIP
  6. DEXMEDETOMIDINE [Suspect]
     Active Substance: DEXMEDETOMIDINE
     Dosage: 1.4 MICROGRAM/KILOGRAM, QH, 0.4-1.4MICROGRAM/KG, DRIP
  7. AMANTADINE [Suspect]
     Active Substance: AMANTADINE
     Indication: Neuroleptic malignant syndrome
     Route: 065
  8. CARBIDOPA\LEVODOPA [Suspect]
     Active Substance: CARBIDOPA\LEVODOPA
     Indication: Neuroleptic malignant syndrome
     Route: 065
  9. HALOPERIDOL [Suspect]
     Active Substance: HALOPERIDOL
     Indication: Psychotic disorder
     Dosage: 5 MILLIGRAM, TWO TIMES A DAY
     Route: 065
  10. FLUVOXAMINE [Suspect]
     Active Substance: FLUVOXAMINE
     Indication: Neuroleptic malignant syndrome
     Route: 065
  11. LORAZEPAM [Suspect]
     Active Substance: LORAZEPAM
     Indication: Neuroleptic malignant syndrome
     Route: 042
  12. BROMOCRIPTINE [Concomitant]
     Active Substance: BROMOCRIPTINE
     Indication: Neuroleptic malignant syndrome
     Route: 065
  13. ETOMIDATE [Concomitant]
     Active Substance: ETOMIDATE
     Indication: Electroconvulsive therapy
     Route: 065
  14. FLUMAZENIL [Concomitant]
     Active Substance: FLUMAZENIL
     Indication: Electroconvulsive therapy
     Route: 065
  15. FLUMAZENIL [Concomitant]
     Active Substance: FLUMAZENIL
     Route: 065
  16. ROCURONIUM [Concomitant]
     Active Substance: ROCURONIUM BROMIDE
     Indication: Hyperkalaemia
     Route: 065

REACTIONS (7)
  - Neuroleptic malignant syndrome [Recovering/Resolving]
  - Aspiration [Recovering/Resolving]
  - Drug ineffective [Unknown]
  - Hypotension [Recovering/Resolving]
  - Hyperkalaemia [Recovering/Resolving]
  - Memory impairment [Not Recovered/Not Resolved]
  - Off label use [Unknown]
